FAERS Safety Report 9031934 (Version 1)
Quarter: 2013Q1

REPORT INFORMATION
  Report Type: Spontaneous
  Country: US (occurrence: US)
  Receive Date: 20130125
  Receipt Date: 20130125
  Transmission Date: 20140127
  Serious: Yes (Other)
  Sender: FDA-Public Use
  Company Number: US-PFIZER INC-2013030812

PATIENT
  Age: 46 Year
  Sex: 0

DRUGS (1)
  1. LYRICA [Suspect]
     Indication: NEURALGIA
     Dosage: 50 MG, 2X/DAY

REACTIONS (4)
  - Road traffic accident [Unknown]
  - Back injury [Unknown]
  - Spinal column injury [Unknown]
  - Musculoskeletal discomfort [Unknown]
